FAERS Safety Report 12609348 (Version 2)
Quarter: 2016Q4

REPORT INFORMATION
  Report Type: Report from Study
  Country: US (occurrence: US)
  Receive Date: 20160801
  Receipt Date: 20161116
  Transmission Date: 20170207
  Serious: Yes (Hospitalization)
  Sender: FDA-Public Use
  Company Number: US-MALLINCKRODT-T201603252

PATIENT
  Age: 72 Year
  Sex: Female

DRUGS (12)
  1. GAMMAGARD [Concomitant]
     Active Substance: HUMAN IMMUNOGLOBULIN G
     Dosage: F/D INFUSE IV ONCE
  2. OMEPRAZOLE. [Concomitant]
     Active Substance: OMEPRAZOLE
     Dosage: 40 MG QD.
  3. VITAMIN D [Concomitant]
     Active Substance: CHOLECALCIFEROL
     Dosage: 50,000 UNITS
  4. SYNTHROID [Concomitant]
     Active Substance: LEVOTHYROXINE SODIUM
     Dosage: 75 MCG QD
  5. PREDNISONE. [Concomitant]
     Active Substance: PREDNISONE
     Dosage: 10 MG 3 TABS AM X 30 DAYS AND THEN 2 TABS IN AM X 30 DAYS
  6. REPOSITORY CORTICOTROPIN INJECTION [Suspect]
     Active Substance: CORTICOTROPIN
     Indication: POLYMYOSITIS
     Dosage: 80 UNITS / 1 ML TWICE WEEKLY X 12 WEEKS
     Route: 058
     Dates: start: 201606
  7. RECLAST [Concomitant]
     Active Substance: ZOLEDRONIC ACID
     Dosage: 5 MG/100 MG
  8. PREDNISONE. [Concomitant]
     Active Substance: PREDNISONE
     Dosage: 5 MG
  9. REPOSITORY CORTICOTROPIN INJECTION [Suspect]
     Active Substance: CORTICOTROPIN
     Dosage: 40 UNITS/ 0.5 ML TWO TIMES PER WEEK
     Route: 058
     Dates: start: 20160620
  10. CALCIUM [Concomitant]
     Active Substance: CALCIUM
     Dosage: 500 MG CHEWABLE QD X 8 WEEKS
  11. CENTRUM SILVER [Concomitant]
     Active Substance: MINERALS\VITAMINS
     Dosage: 1 QD
  12. OCUVITE [Concomitant]
     Active Substance: VITAMINS
     Dosage: 150 MG QD

REACTIONS (6)
  - Deep vein thrombosis [Recovering/Resolving]
  - Ankle fracture [Unknown]
  - Pneumonia [Recovering/Resolving]
  - Asthenia [Not Recovered/Not Resolved]
  - Pulmonary embolism [Recovering/Resolving]
  - Fall [Recovering/Resolving]

NARRATIVE: CASE EVENT DATE: 2016
